FAERS Safety Report 4750484-4 (Version None)
Quarter: 2005Q3

REPORT INFORMATION
  Report Type: 
  Country: None (occurrence: None)
  Receive Date: 20050823
  Receipt Date: 20050729
  Transmission Date: 20060218
  Serious: Yes (Hospitalization)
  Sender: FDA-Public Use
  Company Number: PK-GLAXOSMITHKLINE-B0389373A

PATIENT
  Age: 24 Year
  Sex: Female
  Weight: 50 kg

DRUGS (1)
  1. ZINACEF [Suspect]
     Indication: INFECTION
     Dosage: 250MG TWICE PER DAY
     Route: 048
     Dates: start: 20050720, end: 20050720

REACTIONS (6)
  - BRONCHOSPASM [None]
  - CHEST DISCOMFORT [None]
  - CHOKING [None]
  - DIZZINESS [None]
  - URTICARIA [None]
  - VERTIGO [None]
